FAERS Safety Report 9231137 (Version 1)
Quarter: 2013Q2

REPORT INFORMATION
  Report Type: Spontaneous
  Country: JP (occurrence: JP)
  Receive Date: 20130415
  Receipt Date: 20130415
  Transmission Date: 20140414
  Serious: Yes (Other)
  Sender: FDA-Public Use
  Company Number: 2012SP003536

PATIENT
  Age: 63 Year
  Sex: Male

DRUGS (9)
  1. LUNESTA [Suspect]
     Indication: INSOMNIA
     Route: 048
     Dates: start: 20120920, end: 20121014
  2. LENDORMIN [Concomitant]
     Indication: INSOMNIA
     Route: 048
     Dates: start: 20120627
  3. RESLIN [Concomitant]
     Indication: DEPRESSION
     Route: 048
     Dates: start: 20120627
  4. MYSLEE [Concomitant]
     Indication: INSOMNIA
     Dates: start: 20121014, end: 20121023
  5. CHOTOSAN [Concomitant]
     Indication: LACUNAR INFARCTION
     Route: 048
     Dates: start: 20120627
  6. YOKUKAN-SAN [Concomitant]
     Indication: HYPERAESTHESIA
     Route: 048
     Dates: start: 20121004, end: 20121129
  7. PARIET [Concomitant]
     Indication: GASTROOESOPHAGEAL REFLUX DISEASE
     Route: 048
     Dates: start: 20120809, end: 20121018
  8. ZYLORIC [Concomitant]
     Indication: PRODUCT USED FOR UNKNOWN INDICATION
  9. ZETIA [Concomitant]
     Indication: PRODUCT USED FOR UNKNOWN INDICATION

REACTIONS (8)
  - Oedema mucosal [Recovered/Resolved]
  - Stomatitis [Recovered/Resolved]
  - Abnormal sensation in eye [Recovered/Resolved]
  - Nasal discomfort [Recovered/Resolved]
  - Eyelid oedema [Recovered/Resolved]
  - Nasal oedema [Recovered/Resolved]
  - Lip oedema [Recovered/Resolved]
  - Lip erosion [Recovered/Resolved]
